FAERS Safety Report 6160961-X (Version None)
Quarter: 2009Q2

REPORT INFORMATION
  Report Type: 
  Country: None (occurrence: None)
  Receive Date: 20090420
  Receipt Date: 20090413
  Transmission Date: 20091009
  Serious: Yes (Hospitalization)
  Sender: FDA-Public Use
  Company Number: JP-AMGEN-US343182

PATIENT
  Age: 58 Year
  Sex: Female
  Weight: 45 kg

DRUGS (13)
  1. ENBREL [Suspect]
     Indication: RHEUMATOID ARTHRITIS
     Route: 058
     Dates: start: 20090126, end: 20090316
  2. ENBREL [Suspect]
     Route: 058
     Dates: start: 20090223, end: 20090316
  3. ISCOTIN [Suspect]
     Route: 048
     Dates: start: 20090126
  4. TAKEPRON [Concomitant]
     Route: 048
  5. SALIGREN [Concomitant]
     Route: 048
  6. NORVASC [Concomitant]
     Route: 048
  7. S.M. [Concomitant]
     Route: 048
  8. BACTRAMIN [Concomitant]
     Route: 048
  9. ASPIRIN [Concomitant]
     Route: 048
  10. ONE-ALPHA [Concomitant]
     Route: 048
  11. NEUER [Concomitant]
     Route: 048
  12. BENET [Concomitant]
     Route: 048
  13. PREDNISOLONE [Concomitant]
     Route: 048

REACTIONS (2)
  - POLYMYOSITIS [None]
  - RHABDOMYOLYSIS [None]
